FAERS Safety Report 25588207 (Version 1)
Quarter: 2025Q3

REPORT INFORMATION
  Report Type: 
  Country: AU (occurrence: AU)
  Receive Date: 20250722
  Receipt Date: 20250722
  Transmission Date: 20251020
  Serious: Yes (Other)
  Sender: CELLTRION
  Company Number: AU-CELLTRION INC.-2025AU023758

PATIENT

DRUGS (3)
  1. ADALIMUMAB [Suspect]
     Active Substance: ADALIMUMAB
     Indication: Product used for unknown indication
  2. METHOTREXATE [Concomitant]
     Active Substance: METHOTREXATE
  3. PREDNISOLONE [Concomitant]
     Active Substance: PREDNISOLONE

REACTIONS (8)
  - Macular oedema [Unknown]
  - Retinal degeneration [Unknown]
  - Retinal dystrophy [Unknown]
  - Retinal neovascularisation [Unknown]
  - Retinal oedema [Unknown]
  - Retinal thickening [Unknown]
  - Off label use [Unknown]
  - Drug ineffective for unapproved indication [Unknown]
